FAERS Safety Report 8794293 (Version 2)
Quarter: 2013Q4

REPORT INFORMATION
  Report Type: Spontaneous
  Country: US (occurrence: US)
  Receive Date: 20120918
  Receipt Date: 20131105
  Transmission Date: 20140711
  Serious: Yes (Hospitalization)
  Sender: FDA-Public Use
  Company Number: US-MERCK-1209USA005702

PATIENT
  Age: 36 Year
  Sex: Female

DRUGS (1)
  1. SAPHRIS [Suspect]
     Dosage: 5 MG, UNK
     Route: 060

REACTIONS (2)
  - Drug hypersensitivity [Unknown]
  - Respiratory disorder [Unknown]
